FAERS Safety Report 6787593-4 (Version None)
Quarter: 2010Q2

REPORT INFORMATION
  Report Type: 
  Country: None (occurrence: None)
  Receive Date: 20100623
  Receipt Date: 20040227
  Transmission Date: 20101027
  Serious: Yes (Other)
  Sender: FDA-Public Use
  Company Number: US-PFIZER INC-2007057567

PATIENT

DRUGS (1)
  1. SOMAVERT [Suspect]

REACTIONS (1)
  - LIVER FUNCTION TEST ABNORMAL [None]
